FAERS Safety Report 6577896-0 (Version None)
Quarter: 2010Q1

REPORT INFORMATION
  Report Type: 
  Country: None (occurrence: None)
  Receive Date: 20100211
  Receipt Date: 20100202
  Transmission Date: 20100710
  Serious: Yes (Death)
  Sender: FDA-Public Use
  Company Number: US-ROCHE-684125

PATIENT
  Sex: Male
  Weight: 127 kg

DRUGS (1)
  1. CAPECITABINE [Suspect]
     Indication: COLORECTAL CANCER
     Dosage: IN AM AND PM
     Route: 048
     Dates: start: 20090901, end: 20091211

REACTIONS (1)
  - DEATH [None]
